FAERS Safety Report 8924105 (Version 1)
Quarter: 2012Q4

REPORT INFORMATION
  Report Type: 
  Country: IT (occurrence: IT)
  Receive Date: 20121126
  Receipt Date: 20121126
  Transmission Date: 20130627
  Serious: Yes (Hospitalization)
  Sender: FDA-Public Use
  Company Number: PHHY2012IT107016

PATIENT
  Age: 80 Year
  Sex: Female

DRUGS (5)
  1. ALPRAZOLAM [Suspect]
     Indication: ATAXIA
     Dosage: 0.5 mg, Daily
     Route: 048
     Dates: start: 20110101, end: 20121014
  2. VALIUM [Suspect]
     Indication: AGITATION
     Dosage: 0.05 DF, Total
     Route: 030
     Dates: start: 20121014, end: 20121014
  3. SEROQUEL [Concomitant]
     Indication: PSYCHOTIC DISORDER
  4. HUMULIN R [Concomitant]
     Indication: TYPE 2 DIABETES MELLITUS
  5. GABAPENTIN [Concomitant]
     Indication: PSYCHOTIC DISORDER

REACTIONS (2)
  - Toxicity to various agents [Recovering/Resolving]
  - Sopor [Recovering/Resolving]
